FAERS Safety Report 16608007 (Version 1)
Quarter: 2019Q3

REPORT INFORMATION
  Report Type: Spontaneous
  Country: CN (occurrence: CN)
  Receive Date: 20190722
  Receipt Date: 20190722
  Transmission Date: 20191004
  Serious: Yes (Death)
  Sender: FDA-Public Use
  Company Number: CN-PFIZER INC-2019303418

PATIENT
  Age: 55 Year
  Sex: Male

DRUGS (2)
  1. CYTOSAR [Suspect]
     Active Substance: CYTARABINE
     Indication: ACUTE LEUKAEMIA
     Dosage: 4 G, 2X/DAY
     Route: 041
     Dates: start: 20190703, end: 20190706
  2. SODIUM CHLORIDE. [Concomitant]
     Active Substance: SODIUM CHLORIDE
     Indication: VEHICLE SOLUTION USE
     Dosage: 250 ML, 2X/DAY
     Route: 041
     Dates: start: 20190703, end: 20190706

REACTIONS (6)
  - Eye disorder [Recovering/Resolving]
  - Lacrimation increased [Recovering/Resolving]
  - Foreign body sensation in eyes [Recovering/Resolving]
  - Photophobia [Recovering/Resolving]
  - Death [Fatal]
  - Eye pain [Recovering/Resolving]

NARRATIVE: CASE EVENT DATE: 20190706
